FAERS Safety Report 13142919 (Version 1)
Quarter: 2017Q1

REPORT INFORMATION
  Report Type: Spontaneous
  Country: US (occurrence: US)
  Receive Date: 20170124
  Receipt Date: 20170124
  Transmission Date: 20170428
  Serious: No
  Sender: FDA-Public Use
  Company Number: US-PFIZER INC-2017026711

PATIENT
  Age: 57 Year
  Sex: Female
  Weight: 68.4 kg

DRUGS (4)
  1. LYRICA [Suspect]
     Active Substance: PREGABALIN
     Dosage: 150 MG, ONCE A DAY, MAY TAKE IT TWICE A DAY IF SHE NEEDS IT
     Route: 048
  2. LEVOTHYROXINE. [Concomitant]
     Active Substance: LEVOTHYROXINE
     Indication: HYPERTHYROIDISM
     Dosage: 50 UG, 1X/DAY
     Route: 048
     Dates: start: 1970
  3. LYRICA [Suspect]
     Active Substance: PREGABALIN
     Indication: NERVE INJURY
     Dosage: 150 MG, 2X/DAY
     Route: 048
     Dates: start: 200510
  4. BACLOFEN. [Concomitant]
     Active Substance: BACLOFEN
     Indication: MUSCLE SPASMS
     Dosage: 10 MG, 3X/DAY
     Route: 048

REACTIONS (3)
  - Feeling abnormal [Unknown]
  - Product use issue [Unknown]
  - Intentional product misuse [Unknown]
